FAERS Safety Report 16091793 (Version 1)
Quarter: 2019Q1

REPORT INFORMATION
  Report Type: Other
  Country: IN (occurrence: IN)
  Receive Date: 20190319
  Receipt Date: 20190319
  Transmission Date: 20190418
  Serious: Yes (Hospitalization)
  Sender: FDA-Public Use
  Company Number: IN-B. BRAUN MEDICAL INC.-2064282

PATIENT
  Age: 33 Year
  Sex: Male

DRUGS (1)
  1. CEFTRIAXONE FOR INJECTION AND DEXTROSE INJECTION 0264-3153-11 (NDA 050 [Suspect]
     Active Substance: CEFTRIAXONE SODIUM
     Route: 042

REACTIONS (1)
  - Drug reaction with eosinophilia and systemic symptoms [None]
